FAERS Safety Report 7897961-5 (Version None)
Quarter: 2011Q4

REPORT INFORMATION
  Report Type: 
  Country: None (occurrence: None)
  Receive Date: 20111107
  Receipt Date: 20111102
  Transmission Date: 20120403
  Serious: Yes (Other)
  Sender: FDA-Public Use
  Company Number: CA-PFIZER INC-2011269047

PATIENT
  Age: 70 Year
  Sex: Male

DRUGS (2)
  1. LYRICA [Suspect]
     Indication: PAIN
     Dosage: 75 MG, 2X/DAY
     Dates: start: 20110101
  2. LYRICA [Suspect]
     Dosage: 75MG IN AM AND 150MG IN PM
     Dates: end: 20111001

REACTIONS (1)
  - RENAL IMPAIRMENT [None]
